FAERS Safety Report 4589635-3 (Version None)
Quarter: 2005Q1

REPORT INFORMATION
  Report Type: 
  Country: None (occurrence: None)
  Receive Date: 20050223
  Receipt Date: 20050218
  Transmission Date: 20050727
  Serious: Yes (Other)
  Sender: FDA-Public Use
  Company Number: PHBS2005JP02427

PATIENT
  Age: 80 Year

DRUGS (1)
  1. LAMISIL [Suspect]
     Route: 048

REACTIONS (2)
  - DIPLOPIA [None]
  - INTRAOCULAR PRESSURE INCREASED [None]
